FAERS Safety Report 4653008-5 (Version None)
Quarter: 2005Q2

REPORT INFORMATION
  Report Type: 
  Country: None (occurrence: None)
  Receive Date: 20050502
  Receipt Date: 20050502
  Transmission Date: 20051028
  Serious: Yes (Other)
  Sender: FDA-Public Use
  Company Number: None

PATIENT
  Sex: Female

DRUGS (1)
  1. CORRECTOL [Suspect]
     Indication: CONSTIPATION
     Dosage: 2 TABLETS PO ORAL   ONCE
     Route: 048

REACTIONS (9)
  - ABDOMINAL PAIN [None]
  - BUTTOCK PAIN [None]
  - CHILLS [None]
  - DIARRHOEA [None]
  - DRUG INEFFECTIVE [None]
  - FAECAL INCONTINENCE [None]
  - HAEMORRHOIDS [None]
  - LOSS OF CONSCIOUSNESS [None]
  - PROCTITIS [None]
